FAERS Safety Report 4891938-X (Version None)
Quarter: 2006Q1

REPORT INFORMATION
  Report Type: 
  Country: None (occurrence: None)
  Receive Date: 20060123
  Receipt Date: 20060103
  Transmission Date: 20060701
  Serious: Yes (Disabling)
  Sender: FDA-Public Use
  Company Number: GB200601000287

PATIENT
  Age: 9 Year
  Sex: Female
  Weight: 32 kg

DRUGS (2)
  1. STRATTERA [Suspect]
     Indication: ATTENTION DEFICIT/HYPERACTIVITY DISORDER
     Dosage: 40 MG, ORAL
     Route: 048
     Dates: start: 20050912, end: 20051212
  2. CONCERTA [Concomitant]

REACTIONS (3)
  - AGGRESSION [None]
  - ANXIETY [None]
  - OBSESSIVE-COMPULSIVE DISORDER [None]
